FAERS Safety Report 4972991-1 (Version None)
Quarter: 2006Q2

REPORT INFORMATION
  Report Type: 
  Country: None (occurrence: None)
  Receive Date: 20060414
  Receipt Date: 20060215
  Transmission Date: 20061013
  Serious: Yes (Death)
  Sender: FDA-Public Use
  Company Number: JP-JPN-A200600643

PATIENT
  Sex: Female

DRUGS (5)
  1. PAXIL [Suspect]
     Indication: DRUG USE FOR UNKNOWN INDICATION
     Route: 048
     Dates: start: 20050720
  2. SOLANAX [Concomitant]
     Route: 048
  3. UNKNOWN MEDICATION [Concomitant]
     Route: 065
  4. RISPERDAL [Concomitant]
     Route: 048
     Dates: end: 20050719
  5. DEPROMEL [Concomitant]
     Route: 065
     Dates: start: 20050728

REACTIONS (1)
  - COMPLETED SUICIDE [None]
